FAERS Safety Report 7130986-6 (Version None)
Quarter: 2010Q4

REPORT INFORMATION
  Report Type: 
  Country: None (occurrence: None)
  Receive Date: 20101201
  Receipt Date: 20101124
  Transmission Date: 20110411
  Serious: Yes (Hospitalization)
  Sender: FDA-Public Use
  Company Number: A0896402A

PATIENT
  Age: 49 Year
  Sex: Female

DRUGS (13)
  1. ONDANSETRON [Suspect]
     Dosage: 1TAB AS REQUIRED
     Route: 048
     Dates: start: 20080101
  2. NOVOLOG [Concomitant]
  3. ZENPEP [Concomitant]
  4. ATENOLOL [Concomitant]
  5. DIAZEPAM [Concomitant]
  6. ENTERIC ASPIRIN [Concomitant]
  7. NEXIUM [Concomitant]
  8. PSYLLIUM FIBER [Concomitant]
  9. LOPERAMIDE [Concomitant]
  10. OXYCODONE HCL [Concomitant]
  11. SERTRALINE HYDROCHLORIDE [Concomitant]
  12. WELLBUTRIN [Concomitant]
  13. SIMVASTATIN [Concomitant]

REACTIONS (1)
  - VOMITING [None]
